FAERS Safety Report 15565710 (Version 1)
Quarter: 2018Q4

REPORT INFORMATION
  Report Type: Spontaneous
  Country: US (occurrence: US)
  Receive Date: 20181025
  Receipt Date: 20181025
  Transmission Date: 20190205
  Serious: No
  Sender: FDA-Public Use
  Company Number: None

PATIENT
  Age: 44 Year

DRUGS (1)
  1. RIBASPHERE [Suspect]
     Active Substance: RIBAVIRIN
     Route: 048
     Dates: start: 20181012

REACTIONS (4)
  - Sneezing [None]
  - Feeling cold [None]
  - Tremor [None]
  - Incorrect dose administered [None]

NARRATIVE: CASE EVENT DATE: 20181012
